FAERS Safety Report 23057319 (Version 1)
Quarter: 2023Q4

REPORT INFORMATION
  Report Type: Report from Study
  Country: MX (occurrence: MX)
  Receive Date: 20231012
  Receipt Date: 20231012
  Transmission Date: 20240110
  Serious: Yes (Other)
  Sender: FDA-Public Use
  Company Number: MX-002147023-NVSC2023MX142040

PATIENT
  Age: 9 Year
  Sex: Female
  Weight: 35 kg

DRUGS (2)
  1. OMNITROPE [Suspect]
     Active Substance: SOMATROPIN
     Indication: Product used for unknown indication
     Dosage: 1.2 MG, QD (SOLUTION/VIAL)
     Route: 058
     Dates: start: 201912
  2. OMNITROPE [Suspect]
     Active Substance: SOMATROPIN
     Dosage: 1.6 MG, QD (INCREASED DOSE)
     Route: 058

REACTIONS (6)
  - Epilepsy [Unknown]
  - Hypothyroidism [Unknown]
  - Illness [Unknown]
  - Intentional device misuse [Unknown]
  - Product availability issue [Unknown]
  - Drug ineffective [Unknown]

NARRATIVE: CASE EVENT DATE: 20230615
